FAERS Safety Report 15126583 (Version 1)
Quarter: 2018Q3

REPORT INFORMATION
  Report Type: Other
  Country: CN (occurrence: CN)
  Receive Date: 20180710
  Receipt Date: 20180710
  Transmission Date: 20181010
  Serious: Yes (Other)
  Sender: FDA-Public Use
  Company Number: CN-ARALEZ PHARMACEUTICALS R+D INC.-2018-ARA-001709

PATIENT
  Age: 49 Year
  Sex: Male

DRUGS (1)
  1. METOPROLOL SUCCINATE. [Suspect]
     Active Substance: METOPROLOL SUCCINATE
     Indication: ACUTE MYOCARDIAL INFARCTION
     Dosage: 23.5 MG, QD
     Route: 048
     Dates: start: 20180510, end: 20180510

REACTIONS (1)
  - Henoch-Schonlein purpura [Unknown]

NARRATIVE: CASE EVENT DATE: 20180510
